FAERS Safety Report 5399019-6 (Version None)
Quarter: 2007Q3

REPORT INFORMATION
  Report Type: 
  Country: None (occurrence: None)
  Receive Date: 20070727
  Receipt Date: 20070723
  Transmission Date: 20080115
  Serious: Yes (Other)
  Sender: FDA-Public Use
  Company Number: CA-AMGEN-US229349

PATIENT
  Sex: Female
  Weight: 129 kg

DRUGS (12)
  1. ARANESP [Suspect]
     Indication: RENAL FAILURE CHRONIC
     Route: 058
     Dates: start: 20050614
  2. MONOCOR [Concomitant]
  3. LASIX [Concomitant]
  4. CARDURA [Concomitant]
  5. DIOVAN [Concomitant]
  6. IMDUR [Concomitant]
  7. ASPIRIN [Concomitant]
  8. PLAVIX [Concomitant]
  9. PANTOPRAZOLE SODIUM [Concomitant]
  10. HUMULIN 70/30 [Concomitant]
  11. HUMULIN N [Concomitant]
  12. LIPITOR [Concomitant]
     Dates: start: 20060329

REACTIONS (1)
  - REFRACTORY ANAEMIA [None]
